FAERS Safety Report 22300609 (Version 1)
Quarter: 2023Q2

REPORT INFORMATION
  Report Type: Other
  Country: None (occurrence: JP)
  Receive Date: 20230509
  Receipt Date: 20230509
  Transmission Date: 20230722
  Serious: Yes (Life-Threatening)
  Sender: FDA-Public Use
  Company Number: JP-B.Braun Medical Inc.-2141299

PATIENT
  Age: 72 Year
  Sex: Male

DRUGS (13)
  1. MEROPENEM\SODIUM CHLORIDE [Suspect]
     Active Substance: MEROPENEM\SODIUM CHLORIDE
     Indication: Infection
  2. LANTHANUM CARBONATE [Concomitant]
     Active Substance: LANTHANUM CARBONATE
  3. CALCIUM CARBONATE [Concomitant]
     Active Substance: CALCIUM CARBONATE
  4. CILOSTAZOL [Concomitant]
     Active Substance: CILOSTAZOL
  5. LANSOPRAZOLE [Concomitant]
     Active Substance: LANSOPRAZOLE
  6. CINACALCET [Concomitant]
     Active Substance: CINACALCET
  7. AMLODIPINE [Concomitant]
     Active Substance: AMLODIPINE BESYLATE
  8. ENALAPRIL MALEATE [Concomitant]
     Active Substance: ENALAPRIL MALEATE
  9. CARVEDILOL [Concomitant]
     Active Substance: CARVEDILOL
  10. VANCOMYCIN [Suspect]
     Active Substance: VANCOMYCIN
  11. NOREPINEPHRINE [Concomitant]
     Active Substance: NOREPINEPHRINE
  12. VASOPRESSIN [Concomitant]
     Active Substance: VASOPRESSIN
  13. HYDROCORTISONE [Concomitant]
     Active Substance: HYDROCORTISONE

REACTIONS (1)
  - Drug ineffective [Unknown]
